FAERS Safety Report 4511217-X (Version None)
Quarter: 2004Q4

REPORT INFORMATION
  Report Type: 
  Country: None (occurrence: None)
  Receive Date: 20041122
  Receipt Date: 20041122
  Transmission Date: 20050328
  Serious: Yes (Life-Threatening)
  Sender: FDA-Public Use
  Company Number: None

PATIENT
  Age: 27 Year
  Sex: Male
  Weight: 74.8435 kg

DRUGS (4)
  1. WELLBUTRIN XL [Suspect]
     Indication: ATTENTION DEFICIT/HYPERACTIVITY DISORDER
     Dosage: 150MG    1 A DAY    ORAL
     Route: 048
     Dates: start: 20041111, end: 20041117
  2. WELLBUTRIN XL [Suspect]
     Indication: DEPRESSION
     Dosage: 150MG    1 A DAY    ORAL
     Route: 048
     Dates: start: 20041111, end: 20041117
  3. BUDEPRION SR     150MG      TEVA [Suspect]
     Indication: ATTENTION DEFICIT/HYPERACTIVITY DISORDER
     Dosage: 150MG    X2 A DAY    ORAL
     Route: 048
     Dates: start: 20041118, end: 20041231
  4. BUDEPRION SR     150MG      TEVA [Suspect]
     Indication: DEPRESSION
     Dosage: 150MG    X2 A DAY    ORAL
     Route: 048
     Dates: start: 20041118, end: 20041231

REACTIONS (9)
  - CONFUSIONAL STATE [None]
  - FEAR [None]
  - FEELING ABNORMAL [None]
  - FEELING HOT [None]
  - MEMORY IMPAIRMENT [None]
  - MYDRIASIS [None]
  - PARAESTHESIA [None]
  - PHARMACEUTICAL PRODUCT COMPLAINT [None]
  - THINKING ABNORMAL [None]
